FAERS Safety Report 7065342-2 (Version None)
Quarter: 2010Q4

REPORT INFORMATION
  Report Type: 
  Country: None (occurrence: None)
  Receive Date: 20101027
  Receipt Date: 20101011
  Transmission Date: 20110411
  Serious: Yes (Hospitalization, Other)
  Sender: FDA-Public Use
  Company Number: US-SANOFI-AVENTIS-2010SA062721

PATIENT
  Age: 67 Year
  Sex: Male
  Weight: 107 kg

DRUGS (17)
  1. PLAVIX [Suspect]
     Route: 065
     Dates: start: 20100828
  2. LOVENOX [Suspect]
     Route: 065
     Dates: start: 20100901
  3. COUMADIN [Suspect]
     Route: 065
  4. ASPIRIN [Suspect]
     Route: 065
  5. PROCARDIA [Concomitant]
  6. LOPID [Concomitant]
  7. DYAZIDE [Concomitant]
  8. LOVASTATIN [Concomitant]
  9. PEPCID [Concomitant]
  10. ALLOPURINOL [Concomitant]
  11. VASOTEC [Concomitant]
  12. SYNTHROID [Concomitant]
  13. VICODIN [Concomitant]
  14. BETACAROTENE [Concomitant]
  15. MULTI-VITAMINS [Concomitant]
  16. FISH OIL [Concomitant]
  17. KEPPRA [Concomitant]

REACTIONS (3)
  - CAROTID ARTERY STENOSIS [None]
  - POST PROCEDURAL HAEMORRHAGE [None]
  - RECTAL HAEMORRHAGE [None]
